FAERS Safety Report 16145740 (Version 1)
Quarter: 2019Q2

REPORT INFORMATION
  Report Type: Spontaneous
  Country: JP (occurrence: JP)
  Receive Date: 20190402
  Receipt Date: 20190402
  Transmission Date: 20190711
  Serious: Yes (Death, Hospitalization, Other)
  Sender: FDA-Public Use
  Company Number: JP-TEVA-2019-JP-1032577

PATIENT
  Age: 2 Decade
  Sex: Male

DRUGS (17)
  1. PREDNISOLONE. [Suspect]
     Active Substance: PREDNISOLONE
     Indication: ROSAI-DORFMAN SYNDROME
     Dosage: DOSE ESCALATION
     Route: 065
  2. ETOPOSIDE. [Suspect]
     Active Substance: ETOPOSIDE
     Indication: ROSAI-DORFMAN SYNDROME
     Route: 065
  3. ETOPOSIDE. [Suspect]
     Active Substance: ETOPOSIDE
     Indication: HISTIOCYTIC SARCOMA
     Dosage: RECEIVED FOR TWO CYCLES
     Route: 065
  4. IFOSPHAMIDE [Suspect]
     Active Substance: IFOSFAMIDE
     Indication: HISTIOCYTIC SARCOMA
     Dosage: RECEIVED FOR TWO CYCLES
     Route: 065
  5. IFOSPHAMIDE [Suspect]
     Active Substance: IFOSFAMIDE
     Dosage: RESTATED AT A REDUCED DOSE
     Route: 065
  6. TRAMETINIB [Suspect]
     Active Substance: TRAMETINIB
     Dosage: RE-STARTED AT THIS REDUCED DOSE AFTER WITH-HOLDING FOR 9 DAYS
     Route: 048
  7. CARBOPLATIN. [Suspect]
     Active Substance: CARBOPLATIN
     Indication: HISTIOCYTIC SARCOMA
     Dosage: RECEIVED FOR TWO CYCLES
     Route: 065
  8. IFOSPHAMIDE [Suspect]
     Active Substance: IFOSFAMIDE
     Indication: ROSAI-DORFMAN SYNDROME
     Route: 065
  9. TRAMETINIB [Suspect]
     Active Substance: TRAMETINIB
     Indication: HISTIOCYTIC SARCOMA
     Route: 048
  10. PREDNISOLONE. [Suspect]
     Active Substance: PREDNISOLONE
     Dosage: DOSE WAS AGAIN REDUCED
     Route: 065
  11. CARBOPLATIN. [Suspect]
     Active Substance: CARBOPLATIN
     Indication: ROSAI-DORFMAN SYNDROME
     Route: 065
  12. ETOPOSIDE. [Suspect]
     Active Substance: ETOPOSIDE
     Dosage: RESTATED AT A REDUCED DOSE
     Route: 065
  13. TRAMETINIB [Suspect]
     Active Substance: TRAMETINIB
     Dosage: RE-STARTED
     Route: 048
  14. PREDNISOLONE. [Suspect]
     Active Substance: PREDNISOLONE
     Indication: HISTIOCYTIC SARCOMA
     Dosage: DOSE REDUCED
     Route: 065
  15. PREDNISOLONE. [Suspect]
     Active Substance: PREDNISOLONE
     Dosage: RESTARTED AT AN ESCALATED DOSE
     Route: 065
  16. CARBOPLATIN. [Suspect]
     Active Substance: CARBOPLATIN
     Dosage: RESTATED AT A REDUCED DOSE
     Route: 065
  17. CLADRIBINE. [Suspect]
     Active Substance: CLADRIBINE
     Indication: ROSAI-DORFMAN SYNDROME
     Dosage: SIX CYCLES
     Route: 065

REACTIONS (16)
  - Small intestinal perforation [Fatal]
  - Hepatic enzyme increased [Unknown]
  - Pneumonia [Unknown]
  - Sepsis [Unknown]
  - Pneumomediastinum [Unknown]
  - Pancreatic enzymes increased [Unknown]
  - Vitreous haemorrhage [Unknown]
  - Pneumatosis intestinalis [Unknown]
  - Nocardiosis [Unknown]
  - Tumour haemorrhage [Unknown]
  - Device related infection [Unknown]
  - Pneumatosis [Unknown]
  - Peritoneal disorder [Unknown]
  - Gastrointestinal haemorrhage [Unknown]
  - Skin disorder [Unknown]
  - Treatment failure [Unknown]
